FAERS Safety Report 5022243-9 (Version None)
Quarter: 2006Q2

REPORT INFORMATION
  Report Type: 
  Country: None (occurrence: None)
  Receive Date: 20060609
  Receipt Date: 20060531
  Transmission Date: 20061013
  Serious: Yes (Hospitalization)
  Sender: FDA-Public Use
  Company Number: 2006CG00983

PATIENT
  Age: 9774 Day
  Sex: Male
  Weight: 65 kg

DRUGS (21)
  1. FOSCAVIR [Suspect]
     Indication: HIV INFECTION
     Route: 042
     Dates: start: 20060411, end: 20060421
  2. TMC114 [Concomitant]
     Indication: HIV INFECTION
     Route: 048
     Dates: start: 20050921
  3. NORVIR [Concomitant]
     Indication: HIV INFECTION
     Route: 048
     Dates: start: 20050921
  4. COMBIVIR [Concomitant]
     Indication: HIV INFECTION
     Route: 048
     Dates: start: 20050921
  5. VIREAD [Concomitant]
     Indication: HIV INFECTION
     Route: 048
     Dates: start: 20050921
  6. BACTRIM DS [Concomitant]
     Indication: PNEUMOCYSTIS JIROVECI PNEUMONIA
     Route: 048
  7. BACTRIM DS [Concomitant]
     Indication: CEREBRAL TOXOPLASMOSIS
     Route: 048
  8. FLUCONAZOLE [Concomitant]
     Indication: ORAL CANDIDIASIS
     Route: 048
  9. LEDERFOLINE [Concomitant]
     Indication: HAEMATOTOXICITY
     Route: 048
  10. AZADOSE [Concomitant]
     Indication: MYCOBACTERIAL INFECTION
     Route: 048
  11. PNEUMOREL [Concomitant]
     Indication: NASOPHARYNGITIS
     Route: 048
     Dates: start: 20051213
  12. HELICIDINE [Concomitant]
     Indication: NASOPHARYNGITIS
     Route: 048
     Dates: start: 20051213
  13. NASONEX [Concomitant]
     Indication: NASOPHARYNGITIS
     Route: 045
     Dates: start: 20051213
  14. PARACETAMOL [Concomitant]
     Indication: NASOPHARYNGITIS
     Route: 048
     Dates: start: 20051213
  15. PARACETAMOL [Concomitant]
     Indication: ARTHRALGIA
     Route: 048
     Dates: start: 20051213
  16. CARTREX [Concomitant]
     Indication: ARTHRALGIA
     Route: 048
     Dates: start: 20051213
  17. TETRAZEPAM [Concomitant]
     Indication: INTERVERTEBRAL DISC PROTRUSION
     Route: 048
     Dates: start: 20060201
  18. LAMALINE [Concomitant]
     Indication: INTERVERTEBRAL DISC PROTRUSION
     Route: 054
     Dates: start: 20060201
  19. DOXORUBICIN HCL [Concomitant]
     Route: 042
     Dates: start: 20060331, end: 20060401
  20. CEFTRIAXONE [Concomitant]
     Route: 042
     Dates: start: 20060301, end: 20060101
  21. CEFTRIAXONE [Concomitant]
     Dates: start: 20060411

REACTIONS (4)
  - ABDOMINAL PAIN [None]
  - DIARRHOEA [None]
  - DRUG HYPERSENSITIVITY [None]
  - PYREXIA [None]
